FAERS Safety Report 5781821-X (Version None)
Quarter: 2008Q2

REPORT INFORMATION
  Report Type: 
  Country: None (occurrence: None)
  Receive Date: 20080623
  Receipt Date: 20071212
  Transmission Date: 20081010
  Serious: No
  Sender: FDA-Public Use
  Company Number: US-ASTRAZENECA-2007UW28281

PATIENT
  Age: 71 Year
  Sex: Female
  Weight: 72.6 kg

DRUGS (2)
  1. RHINOCORT [Suspect]
     Indication: MULTIPLE ALLERGIES
     Dosage: ONE SPRAY PER NOSTRIL EVERY DAY
     Route: 045
     Dates: start: 20070101
  2. CLARITIN [Concomitant]

REACTIONS (2)
  - NASAL DISCOMFORT [None]
  - PAROSMIA [None]
